FAERS Safety Report 6024347-0 (Version None)
Quarter: 2008Q4

REPORT INFORMATION
  Report Type: 
  Country: None (occurrence: None)
  Receive Date: 20081231
  Receipt Date: 20081222
  Transmission Date: 20090506
  Serious: Yes (Other)
  Sender: FDA-Public Use
  Company Number: GB-JNJFOC-20080904969

PATIENT
  Sex: Male

DRUGS (4)
  1. REMICADE [Suspect]
     Dosage: 6TH DOSE
     Route: 042
  2. REMICADE [Suspect]
     Dosage: 5TH DOSE
     Route: 042
  3. REMICADE [Suspect]
     Indication: CROHN'S DISEASE
     Dosage: 7 MONTHS
     Route: 042
  4. UNSPECIFIED MEDICATION [Concomitant]

REACTIONS (6)
  - BUCCAL MUCOSAL ROUGHENING [None]
  - CALCINOSIS [None]
  - DRY SKIN [None]
  - ORAL PAIN [None]
  - PRURITUS [None]
  - RASH [None]
